FAERS Safety Report 24114425 (Version 2)
Quarter: 2024Q4

REPORT INFORMATION
  Report Type: Spontaneous
  Country: US (occurrence: US)
  Receive Date: 20240720
  Receipt Date: 20241025
  Transmission Date: 20250115
  Serious: Yes (Hospitalization, Other)
  Sender: RANBAXY
  Company Number: US-SUN PHARMACEUTICAL INDUSTRIES LTD-2024R1-457645

PATIENT
  Sex: Female

DRUGS (1)
  1. BUPROPION [Suspect]
     Active Substance: BUPROPION
     Indication: Depression
     Dosage: UNK
     Route: 065

REACTIONS (6)
  - Conduction disorder [Unknown]
  - Status epilepticus [Unknown]
  - Suicide attempt [Unknown]
  - Encephalopathy [Unknown]
  - Brain injury [Recovering/Resolving]
  - Overdose [Unknown]
